FAERS Safety Report 4527269-7 (Version None)
Quarter: 2004Q4

REPORT INFORMATION
  Report Type: 
  Country: None (occurrence: None)
  Receive Date: 20041214
  Receipt Date: 20041214
  Transmission Date: 20050328
  Serious: Yes (Other)
  Sender: FDA-Public Use
  Company Number: None

PATIENT
  Age: 52 Year
  Sex: Male
  Weight: 97.5234 kg

DRUGS (11)
  1. SINGULAIR [Suspect]
     Indication: HYPERSENSITIVITY
     Dosage: 1 TAB DAILY
     Dates: start: 20031001, end: 20040201
  2. PONDIMIN [Concomitant]
  3. RITALIN [Concomitant]
  4. CYLERT [Concomitant]
  5. WELLBUTRIN [Concomitant]
  6. EFFEXOR [Concomitant]
  7. PAXIL [Concomitant]
  8. LOTREL [Concomitant]
  9. ADVAIR DISKUS 100/50 [Concomitant]
  10. ALBUTEROL [Concomitant]
  11. FLONASE [Concomitant]

REACTIONS (12)
  - BACK PAIN [None]
  - CONFUSIONAL STATE [None]
  - DIZZINESS [None]
  - FATIGUE [None]
  - HEADACHE [None]
  - HEPATOCELLULAR DAMAGE [None]
  - INFLUENZA LIKE ILLNESS [None]
  - MYALGIA [None]
  - PROTEIN URINE [None]
  - RENAL DISORDER [None]
  - SWELLING FACE [None]
  - VERTIGO [None]
